FAERS Safety Report 8174084-1 (Version None)
Quarter: 2012Q1

REPORT INFORMATION
  Report Type: 
  Country: None (occurrence: None)
  Receive Date: 20120229
  Receipt Date: 20120214
  Transmission Date: 20120608
  Serious: Yes (Hospitalization)
  Sender: FDA-Public Use
  Company Number: FR-CELGENEUS-056-21880-12021702

PATIENT
  Sex: Male
  Weight: 58 kg

DRUGS (7)
  1. LASIX [Concomitant]
     Route: 065
  2. DEXAMETHASONE [Suspect]
     Indication: MULTIPLE MYELOMA
     Route: 048
     Dates: start: 20111215, end: 20120206
  3. REVLIMID [Suspect]
     Indication: MULTIPLE MYELOMA
     Route: 048
     Dates: start: 20111215, end: 20120106
  4. BACTRIM [Concomitant]
     Indication: INFECTION PROPHYLAXIS
     Route: 048
  5. VELCADE [Suspect]
     Indication: MULTIPLE MYELOMA
     Route: 041
     Dates: start: 20111215, end: 20120206
  6. VALACYCLOVIR HYDROCHLORIDE [Concomitant]
     Indication: INFECTION PROPHYLAXIS
     Dosage: 500 MILLIGRAM
     Route: 048
  7. ARANESP [Concomitant]
     Route: 058

REACTIONS (1)
  - TOXIC SKIN ERUPTION [None]
